FAERS Safety Report 11607428 (Version 1)
Quarter: 2015Q3

REPORT INFORMATION
  Report Type: Spontaneous
  Country: US (occurrence: US)
  Receive Date: 20150916
  Receipt Date: 20150916
  Transmission Date: 20151125
  Serious: Yes (Hospitalization)
  Sender: FDA-Public Use
  Company Number: US-ELI_LILLY_AND_COMPANY-US201401000776

PATIENT
  Sex: Male

DRUGS (7)
  1. HUMALOG [Suspect]
     Active Substance: INSULIN LISPRO
     Indication: TYPE 1 DIABETES MELLITUS
     Dosage: 15 U, PRN
     Route: 065
  2. LUNESTA [Concomitant]
     Active Substance: ESZOPICLONE
  3. SINGULAIR [Concomitant]
     Active Substance: MONTELUKAST SODIUM
  4. LEVEMIR [Concomitant]
     Active Substance: INSULIN DETEMIR
  5. NORVASC [Concomitant]
     Active Substance: AMLODIPINE BESYLATE
  6. CELEXA [Concomitant]
     Active Substance: CITALOPRAM HYDROBROMIDE
  7. WELLBUTRIN XL [Concomitant]
     Active Substance: BUPROPION HYDROCHLORIDE

REACTIONS (4)
  - Blood glucose decreased [Unknown]
  - Injection site discolouration [Unknown]
  - Blood glucose increased [Unknown]
  - Amnesia [Unknown]
